FAERS Safety Report 8012568-7 (Version None)
Quarter: 2011Q4

REPORT INFORMATION
  Report Type: 
  Country: None (occurrence: None)
  Receive Date: 20111229
  Receipt Date: 20111219
  Transmission Date: 20120403
  Serious: Yes (Other)
  Sender: FDA-Public Use
  Company Number: FR-ACCORD-011743

PATIENT
  Age: 38 Year
  Sex: Female

DRUGS (4)
  1. TACROLIMUS [Suspect]
     Indication: IMMUNOSUPPRESSION
  2. SIROLIMUS [Suspect]
     Indication: IMMUNOSUPPRESSION
     Dosage: TARGETED TROUGH LEVEL:6-12 NG/ML
  3. PREDNISONE TAB [Suspect]
     Indication: IMMUNOSUPPRESSION
  4. MYCOPHENOLATE MOFETIL [Suspect]
     Indication: IMMUNOSUPPRESSION

REACTIONS (8)
  - RENAL IMPAIRMENT [None]
  - VIRAL INFECTION [None]
  - THROMBOTIC MICROANGIOPATHY [None]
  - BLOOD TRIGLYCERIDES INCREASED [None]
  - CERVIX CARCINOMA [None]
  - LUNG DISORDER [None]
  - HYPERTENSION [None]
  - CHOLANGITIS [None]
